FAERS Safety Report 18544547 (Version 1)
Quarter: 2020Q4

REPORT INFORMATION
  Report Type: Spontaneous
  Country: US (occurrence: US)
  Receive Date: 20201125
  Receipt Date: 20201125
  Transmission Date: 20210114
  Serious: No
  Sender: FDA-Public Use
  Company Number: US-009507513-2010USA011178

PATIENT
  Age: 19 Year
  Sex: Female

DRUGS (2)
  1. LORATADINE. [Concomitant]
     Active Substance: LORATADINE
  2. PROVENTIL [Suspect]
     Active Substance: ALBUTEROL
     Indication: ASTHMA
     Dosage: 2 PUFFS AS REQUIRED
     Route: 055
     Dates: start: 2020

REACTIONS (3)
  - Poor quality product administered [Unknown]
  - Incorrect dose administered [Unknown]
  - Product quality issue [Unknown]

NARRATIVE: CASE EVENT DATE: 20201026
